FAERS Safety Report 23225707 (Version 3)
Quarter: 2023Q4

REPORT INFORMATION
  Report Type: Spontaneous
  Country: US (occurrence: US)
  Receive Date: 20231124
  Receipt Date: 20231219
  Transmission Date: 20240110
  Serious: Yes (Other)
  Sender: FDA-Public Use
  Company Number: US-SANOFI-01844863

PATIENT
  Age: 26 Year
  Sex: Male

DRUGS (1)
  1. LANTUS SOLOSTAR [Suspect]
     Active Substance: INSULIN GLARGINE
     Indication: Type 1 diabetes mellitus
     Dosage: 10 IU, HS
     Route: 065
     Dates: start: 2022

REACTIONS (3)
  - Diabetes mellitus inadequate control [Unknown]
  - Intentional product misuse [Unknown]
  - Product dispensing error [Unknown]
